FAERS Safety Report 8235642 (Version 3)
Quarter: 2023Q2

REPORT INFORMATION
  Report Type: Spontaneous
  Country: DE (occurrence: DE)
  Receive Date: 20111108
  Receipt Date: 20230616
  Transmission Date: 20230722
  Serious: Yes (Hospitalization)
  Sender: FDA-Public Use
  Company Number: GXKR2011DE003230

PATIENT
  Age: 41 Year
  Sex: Male

DRUGS (12)
  1. CARBAMAZEPINE [Suspect]
     Active Substance: CARBAMAZEPINE
     Indication: Product used for unknown indication
     Dosage: 400 MG, QD 1-1-0 DAILY DOSE: 400 MG MILLIGRAM(S) EVERY DAY
     Route: 048
     Dates: start: 200903
  2. RISPERIDONE [Suspect]
     Active Substance: RISPERIDONE
     Indication: Product used for unknown indication
     Dosage: 1 MG, BID (1-0-1 DAILY DOSE: 2 MG MILLIGRAM(S) EVERY DAY)
     Route: 048
     Dates: start: 200903
  3. THIORIDAZINE [Suspect]
     Active Substance: THIORIDAZINE
     Indication: Product used for unknown indication
     Dosage: 300 MG, QD 1-1-1 DAILY DOSE: 300 MG MILLIGRAM(S) EVERY DAY
     Route: 048
     Dates: start: 200711
  4. LORAZEPAM [Suspect]
     Active Substance: LORAZEPAM
     Indication: Product used for unknown indication
     Dosage: 1 MG, TID 3 X 1 DAILY DOSE: 3 MG MILLIGRAM(S) EVERY DAY
     Route: 048
     Dates: start: 201006
  5. LAMOTRIGINE [Suspect]
     Active Substance: LAMOTRIGINE
     Indication: Product used for unknown indication
     Dosage: 1-0-2
     Route: 048
     Dates: start: 201006
  6. THIORIDAZINE HYDROCHLORIDE [Suspect]
     Active Substance: THIORIDAZINE HYDROCHLORIDE
     Indication: Product used for unknown indication
     Dosage: 100 MG, TID (1-1-1)
     Route: 048
     Dates: start: 200711
  7. PERAZINE DIMALONATE [Suspect]
     Active Substance: PERAZINE DIMALONATE
     Indication: Product used for unknown indication
     Dosage: 100 MG (1-0-2)
     Route: 048
     Dates: start: 201009
  8. AKINETON [Suspect]
     Active Substance: BIPERIDEN HYDROCHLORIDE
     Indication: Product used for unknown indication
     Dosage: 2 MG (1/2-0-1/2)
     Route: 048
     Dates: start: 200504
  9. LAMOTRIGINE [Suspect]
     Active Substance: LAMOTRIGINE
     Indication: Product used for unknown indication
     Dosage: 200 MG, QD (1-0-2 DAILY DOSE)
     Route: 048
     Dates: start: 201006
  10. AKINETON [Suspect]
     Active Substance: BIPERIDEN HYDROCHLORIDE
     Indication: Product used for unknown indication
     Dosage: 4 MG, QD 1/2-0-1/2 DAILY DOSE: 4 MG MILLIGRAM(S) EVERY DAY
     Route: 048
     Dates: start: 200504
  11. PERAZINE DIMALONATE [Suspect]
     Active Substance: PERAZINE DIMALONATE
     Indication: Product used for unknown indication
     Dosage: 200 MG, QD 1-0-2 DAILY DOSE
     Route: 048
     Dates: start: 201009
  12. CEFUROXIME [Concomitant]
     Active Substance: CEFUROXIME
     Indication: Bronchitis
     Dosage: UNK
     Route: 048
     Dates: start: 20110208

REACTIONS (3)
  - Acute hepatic failure [Recovered/Resolved]
  - Acute kidney injury [Recovered/Resolved]
  - Thrombocytopenia [Recovered/Resolved]

NARRATIVE: CASE EVENT DATE: 20110211
